FAERS Safety Report 5357843-X (Version None)
Quarter: 2007Q2

REPORT INFORMATION
  Report Type: 
  Country: None (occurrence: None)
  Receive Date: 20070614
  Receipt Date: 20070530
  Transmission Date: 20071010
  Serious: Yes (Other)
  Sender: FDA-Public Use
  Company Number: IT-GENENTECH-242855

PATIENT
  Sex: Female

DRUGS (2)
  1. HERCEPTIN [Suspect]
     Indication: BREAST CANCER METASTATIC
     Dosage: 8 MG/KG, Q3W
     Route: 042
  2. VINORELBINE [Suspect]
     Indication: BREAST CANCER METASTATIC
     Dosage: 30 MG/M2, 2/MONTH

REACTIONS (4)
  - EJECTION FRACTION DECREASED [None]
  - HYPERTENSION [None]
  - HYPERTHYROIDISM [None]
  - TACHYCARDIA [None]
